FAERS Safety Report 17511948 (Version 1)
Quarter: 2020Q1

REPORT INFORMATION
  Report Type: Spontaneous
  Country: DE (occurrence: DE)
  Receive Date: 20200308
  Receipt Date: 20200308
  Transmission Date: 20200409
  Serious: Yes (Other)
  Sender: FDA-Public Use
  Company Number: PHHY2018DE061662

PATIENT
  Sex: Female

DRUGS (1)
  1. CALCIUM [Suspect]
     Active Substance: CALCIUM
     Indication: STRESS FRACTURE
     Dosage: UNK
     Route: 065

REACTIONS (4)
  - Oesophagitis [Unknown]
  - Pharyngitis [Unknown]
  - Pain [Unknown]
  - Oesophageal perforation [Unknown]
